FAERS Safety Report 22619709 (Version 1)
Quarter: 2023Q2

REPORT INFORMATION
  Report Type: Report from Study
  Country: BR (occurrence: BR)
  Receive Date: 20230620
  Receipt Date: 20230620
  Transmission Date: 20230722
  Serious: Yes (Other)
  Sender: FDA-Public Use
  Company Number: BR-TAKEDA-2023TUS008630

PATIENT
  Age: 65 Year
  Sex: Male

DRUGS (1)
  1. VEDOLIZUMAB [Suspect]
     Active Substance: VEDOLIZUMAB
     Indication: Colitis ulcerative
     Dosage: UNK
     Route: 042
     Dates: start: 202301

REACTIONS (4)
  - Adverse event [Unknown]
  - Incisional hernia [Unknown]
  - Gastrointestinal inflammation [Unknown]
  - Product administration error [Unknown]

NARRATIVE: CASE EVENT DATE: 20230118
